APPROVED DRUG PRODUCT: LUPRON DEPOT
Active Ingredient: LEUPROLIDE ACETATE
Strength: 30MG
Dosage Form/Route: INJECTABLE;INJECTION
Application: N020517 | Product #002
Applicant: ABBVIE ENDOCRINE INC
Approved: May 30, 1997 | RLD: Yes | RS: Yes | Type: RX